FAERS Safety Report 25574267 (Version 1)
Quarter: 2025Q3

REPORT INFORMATION
  Report Type: Other
  Country: BN (occurrence: BN)
  Receive Date: 20250717
  Receipt Date: 20250717
  Transmission Date: 20251021
  Serious: Yes (Hospitalization, Disabling, Other)
  Sender: BRECKENRIDGE PHARMACEUTICAL, INC.
  Company Number: BN-Breckenridge Pharmaceutical, Inc.-2180726

PATIENT
  Age: 56 Year
  Sex: Female

DRUGS (2)
  1. OMEPRAZOLE [Suspect]
     Active Substance: OMEPRAZOLE
  2. ROSUVASTATIN [Interacting]
     Active Substance: ROSUVASTATIN

REACTIONS (4)
  - Rhabdomyolysis [Recovered/Resolved]
  - Dermatomyositis [Recovered/Resolved]
  - Myopathy [Recovered/Resolved]
  - Drug interaction [Recovered/Resolved]
